FAERS Safety Report 9189190 (Version 1)
Quarter: 2013Q1

REPORT INFORMATION
  Report Type: Spontaneous
  Country: US (occurrence: None)
  Receive Date: 20130325
  Receipt Date: 20130325
  Transmission Date: 20140127
  Serious: Yes (Death)
  Sender: FDA-Public Use
  Company Number: None

PATIENT
  Age: 75 Year
  Sex: Male
  Weight: 56.08 kg

DRUGS (2)
  1. WARFARIN [Suspect]
     Indication: DEEP VEIN THROMBOSIS
     Dosage: 5MG DAILY PO
     Route: 048
     Dates: start: 20130131, end: 20130225
  2. WARFARIN [Suspect]

REACTIONS (3)
  - International normalised ratio increased [None]
  - Sudden death [None]
  - Haemorrhage [None]
